FAERS Safety Report 6829535 (Version 5)
Quarter: 2019Q3

REPORT INFORMATION
  Report Type: Report from Study
  Country: BR (occurrence: BR)
  Receive Date: 20081202
  Receipt Date: 20190819
  Transmission Date: 20191005
  Serious: Yes (Other)
  Sender: FDA-Public Use
  Company Number: PHHY2008BR29784

PATIENT
  Sex: Female
  Weight: 60 kg

DRUGS (6)
  1. TEGRETOL XR [Suspect]
     Active Substance: CARBAMAZEPINE
     Dosage: 1300 MG/ DAY
     Route: 048
  2. GARDENAL [Suspect]
     Active Substance: PHENOBARBITAL
     Dosage: 100 ML, UNK
     Route: 065
  3. GARDENAL [Suspect]
     Active Substance: PHENOBARBITAL
     Indication: PETIT MAL EPILEPSY
     Dosage: 50 MG, Q8H
     Route: 065
  4. TEGRETOL XR [Suspect]
     Active Substance: CARBAMAZEPINE
     Indication: PETIT MAL EPILEPSY
     Dosage: 200 MG, UNK
     Route: 048
     Dates: start: 1998
  5. TEGRETOL XR [Suspect]
     Active Substance: CARBAMAZEPINE
     Dosage: 400 MG, Q8H
     Route: 048
  6. DEPAKOTE [Suspect]
     Active Substance: DIVALPROEX SODIUM
     Indication: PETIT MAL EPILEPSY
     Dosage: 500 MG, TWO TABLETS DAILY
     Route: 065

REACTIONS (13)
  - Petit mal epilepsy [Unknown]
  - Paraesthesia [Not Recovered/Not Resolved]
  - Diplopia [Not Recovered/Not Resolved]
  - Peripheral swelling [Not Recovered/Not Resolved]
  - Muscular weakness [Not Recovered/Not Resolved]
  - Joint swelling [Not Recovered/Not Resolved]
  - Skin hyperpigmentation [Not Recovered/Not Resolved]
  - Somnolence [Unknown]
  - Balance disorder [Recovered/Resolved]
  - Weight increased [Unknown]
  - Drug ineffective [Unknown]
  - Memory impairment [Not Recovered/Not Resolved]
  - Dizziness [Not Recovered/Not Resolved]
